FAERS Safety Report 4395460-9 (Version None)
Quarter: 2004Q3

REPORT INFORMATION
  Report Type: 
  Country: None (occurrence: None)
  Receive Date: 20040712
  Receipt Date: 20040712
  Transmission Date: 20050211
  Serious: Yes (Other)
  Sender: FDA-Public Use
  Company Number: None

PATIENT
  Sex: Female
  Weight: 72.5755 kg

DRUGS (5)
  1. LEVAQUIN [Suspect]
     Indication: LARYNGITIS
     Dosage: 500 MG ONCE PER D BUCCAL
     Route: 002
     Dates: start: 20040614, end: 20040621
  2. LEVAQUIN [Suspect]
     Indication: TRACHEITIS
     Dosage: 500 MG ONCE PER D BUCCAL
     Route: 002
     Dates: start: 20040614, end: 20040621
  3. LEVAQUIN [Suspect]
     Indication: UPPER RESPIRATORY TRACT INFECTION
     Dosage: 500 MG ONCE PER D BUCCAL
     Route: 002
     Dates: start: 20040614, end: 20040621
  4. SYNTHROID [Concomitant]
  5. ZETIA [Concomitant]

REACTIONS (6)
  - ARTHRALGIA [None]
  - FATIGUE [None]
  - IMPAIRED WORK ABILITY [None]
  - PAIN IN EXTREMITY [None]
  - TENDON DISORDER [None]
  - VISION BLURRED [None]
